FAERS Safety Report 19397914 (Version 3)
Quarter: 2021Q3

REPORT INFORMATION
  Report Type: Report from Study
  Country: AU (occurrence: AU)
  Receive Date: 20210610
  Receipt Date: 20210908
  Transmission Date: 20211014
  Serious: Yes (Other)
  Sender: FDA-Public Use
  Company Number: AU-BRISTOL-MYERS SQUIBB COMPANY-BMS-2021-053572

PATIENT
  Age: 64 Year
  Sex: Male

DRUGS (1)
  1. NIVOLUMAB [Suspect]
     Active Substance: NIVOLUMAB
     Indication: MALIGNANT MELANOMA
     Dosage: 240 MILLIGRAM
     Route: 042
     Dates: start: 20200416

REACTIONS (4)
  - Solar lentigo [Recovered/Resolved]
  - Anger [Unknown]
  - Anxiety [Not Recovered/Not Resolved]
  - Erectile dysfunction [Unknown]

NARRATIVE: CASE EVENT DATE: 20200902
